FAERS Safety Report 10254767 (Version 1)
Quarter: 2014Q2

REPORT INFORMATION
  Report Type: Spontaneous
  Country: US (occurrence: None)
  Receive Date: 20140620
  Receipt Date: 20140620
  Transmission Date: 20141212
  Serious: Yes (Disabling)
  Sender: FDA-Public Use
  Company Number: None

PATIENT
  Age: 65 Year
  Sex: Female
  Weight: 106.6 kg

DRUGS (5)
  1. NAPROXEN SODIUM [Suspect]
     Indication: MUSCULOSKELETAL PAIN
     Dosage: 2 ONCE DAILY TAKEN BY MOUTH
     Route: 048
     Dates: start: 20140612, end: 20140617
  2. NAPROXEN SODIUM [Suspect]
     Indication: ARTHRALGIA
     Dosage: 2 ONCE DAILY TAKEN BY MOUTH
     Route: 048
     Dates: start: 20140612, end: 20140617
  3. NAPROXEN SODIUM [Suspect]
     Indication: PAIN IN EXTREMITY
     Dosage: 2 ONCE DAILY TAKEN BY MOUTH
     Route: 048
     Dates: start: 20140612, end: 20140617
  4. NAPROXEN SODIUM [Suspect]
     Indication: PAIN IN EXTREMITY
     Dosage: 2 ONCE DAILY TAKEN BY MOUTH
     Route: 048
     Dates: start: 20140612, end: 20140617
  5. NAPROXEN SODIUM [Suspect]
     Indication: ARTHRALGIA
     Dosage: 2 ONCE DAILY TAKEN BY MOUTH
     Route: 048
     Dates: start: 20140612, end: 20140617

REACTIONS (4)
  - Arthralgia [None]
  - Condition aggravated [None]
  - Product substitution issue [None]
  - Product quality issue [None]
